FAERS Safety Report 14419395 (Version 1)
Quarter: 2018Q1

REPORT INFORMATION
  Report Type: Spontaneous
  Country: US (occurrence: US)
  Receive Date: 20180122
  Receipt Date: 20180122
  Transmission Date: 20180509
  Serious: Yes (Death)
  Sender: FDA-Public Use
  Company Number: US-PFIZER INC-2018027943

PATIENT
  Age: 99 Year
  Sex: Male
  Weight: 101 kg

DRUGS (10)
  1. GLIPIZIDE. [Concomitant]
     Active Substance: GLIPIZIDE
     Indication: METABOLIC DISORDER
  2. LEVOTHYROXINE. [Concomitant]
     Active Substance: LEVOTHYROXINE
     Indication: ENDOCRINE DISORDER
     Dosage: UNK
     Dates: start: 20170317
  3. GLIPIZIDE. [Concomitant]
     Active Substance: GLIPIZIDE
     Indication: ENDOCRINE DISORDER
     Dosage: UNK
     Dates: start: 20170719
  4. OMEPRAZOLE. [Concomitant]
     Active Substance: OMEPRAZOLE
     Indication: GASTRIC DISORDER
     Dosage: UNK
     Dates: start: 20160302
  5. CELEBREX [Suspect]
     Active Substance: CELECOXIB
     Indication: GOUT
     Dosage: 100 MG, 1 TO 2 CAPSULES DAILY AS NEEDED
     Route: 048
     Dates: start: 20160511
  6. LEVOFLOXACIN. [Concomitant]
     Active Substance: LEVOFLOXACIN
     Dosage: UNK
     Route: 048
     Dates: start: 20171026
  7. QUINAPRIL. [Concomitant]
     Active Substance: QUINAPRIL
     Indication: CARDIOVASCULAR DISORDER
     Dosage: UNK
     Dates: start: 20170313
  8. TORSEMIDE. [Concomitant]
     Active Substance: TORSEMIDE
     Indication: CARDIOVASCULAR DISORDER
     Dosage: UNK
     Dates: start: 20170612
  9. ALLOPURINOL. [Concomitant]
     Active Substance: ALLOPURINOL
     Indication: ANALGESIC THERAPY
     Dosage: UNK
     Dates: start: 20170313
  10. COLACE [Concomitant]
     Active Substance: DOCUSATE SODIUM
     Indication: GASTRIC DISORDER
     Dosage: UNK
     Dates: start: 20131113

REACTIONS (1)
  - Death [Fatal]
